FAERS Safety Report 23953223 (Version 1)
Quarter: 2024Q2

REPORT INFORMATION
  Report Type: Spontaneous
  Country: RO (occurrence: None)
  Receive Date: 20240608
  Receipt Date: 20240608
  Transmission Date: 20240715
  Serious: Yes (Death)
  Sender: FDA-Public Use
  Company Number: RO-ROCHE-3576584

PATIENT
  Age: 15 Year
  Sex: Female
  Weight: 15.2 kg

DRUGS (2)
  1. EVRYSDI [Suspect]
     Active Substance: RISDIPLAM
     Indication: Spinal muscular atrophy
     Route: 048
     Dates: start: 202208
  2. SERTRALINE HYDROCHLORIDE [Concomitant]
     Active Substance: SERTRALINE HYDROCHLORIDE

REACTIONS (3)
  - Pneumonia [Fatal]
  - Restrictive pulmonary disease [Fatal]
  - Scoliosis [Fatal]

NARRATIVE: CASE EVENT DATE: 20240505
